APPROVED DRUG PRODUCT: WELCHOL
Active Ingredient: COLESEVELAM HYDROCHLORIDE
Strength: 1.875GM/PACKET **Federal Register determination that product was not discontinued or withdrawn for safety or effectiveness reasons**
Dosage Form/Route: FOR SUSPENSION;ORAL
Application: N022362 | Product #001
Applicant: COSETTE PHARMACEUTICALS INC
Approved: Oct 2, 2009 | RLD: Yes | RS: No | Type: DISCN